FAERS Safety Report 7618075-5 (Version None)
Quarter: 2011Q3

REPORT INFORMATION
  Report Type: 
  Country: None (occurrence: None)
  Receive Date: 20110718
  Receipt Date: 20110718
  Transmission Date: 20111222
  Serious: Yes (Life-Threatening)
  Sender: FDA-Public Use
  Company Number: IL-PFIZER INC-2011161504

PATIENT
  Sex: Male

DRUGS (1)
  1. GEODON [Suspect]

REACTIONS (1)
  - AORTIC ANEURYSM [None]
